FAERS Safety Report 5489608-2 (Version None)
Quarter: 2007Q4

REPORT INFORMATION
  Report Type: 
  Country: None (occurrence: None)
  Receive Date: 20071018
  Receipt Date: 20071010
  Transmission Date: 20080405
  Serious: Yes (Hospitalization)
  Sender: FDA-Public Use
  Company Number: US-MERCK-0710USA02639

PATIENT
  Age: 83 Year
  Sex: Male

DRUGS (14)
  1. ZOCOR [Suspect]
     Indication: BLOOD CHOLESTEROL INCREASED
     Route: 048
     Dates: start: 20050101, end: 20070906
  2. CELEXA [Suspect]
     Indication: DEPRESSION
     Route: 048
     Dates: start: 20070806, end: 20070906
  3. CELEXA [Suspect]
     Route: 048
     Dates: start: 20070801, end: 20070805
  4. CELEXA [Suspect]
     Indication: PANIC ATTACK
     Route: 048
     Dates: start: 20070806, end: 20070906
  5. CELEXA [Suspect]
     Route: 048
     Dates: start: 20070801, end: 20070805
  6. PLAVIX [Concomitant]
     Route: 065
  7. WARFARIN [Concomitant]
     Route: 065
  8. LORAZEPAM [Concomitant]
     Route: 065
  9. IMDUR [Concomitant]
     Route: 065
  10. CARVEDILOL [Concomitant]
     Route: 065
  11. POTASSIUM CHLORIDE [Concomitant]
     Route: 065
  12. OMEPRAZOLE [Concomitant]
     Route: 065
  13. METFORMIN [Concomitant]
     Route: 065
  14. FUROSEMIDE [Concomitant]
     Route: 065

REACTIONS (5)
  - ASTHENIA [None]
  - BLOOD CREATINE PHOSPHOKINASE INCREASED [None]
  - DRUG INTERACTION [None]
  - FATIGUE [None]
  - HEPATIC ENZYME INCREASED [None]
